FAERS Safety Report 16923622 (Version 1)
Quarter: 2019Q4

REPORT INFORMATION
  Report Type: Spontaneous
  Country: US (occurrence: US)
  Receive Date: 20190823
  Receipt Date: 20190823
  Transmission Date: 20200122
  Serious: No
  Sender: FDA-Public Use
  Company Number: None

PATIENT
  Age: 70 Year
  Sex: Female

DRUGS (2)
  1. CAPECITABINE 150MG [Suspect]
     Active Substance: CAPECITABINE
     Indication: RECTAL CANCER
     Route: 048
     Dates: start: 20190719
  2. CAPECITABINE 500MG [Suspect]
     Active Substance: CAPECITABINE
     Indication: RECTAL CANCER
     Dates: start: 20190719

REACTIONS (2)
  - Palmar-plantar erythrodysaesthesia syndrome [None]
  - Blister [None]

NARRATIVE: CASE EVENT DATE: 20190820
